FAERS Safety Report 20961291 (Version 1)
Quarter: 2022Q2

REPORT INFORMATION
  Report Type: Spontaneous
  Country: CN (occurrence: CN)
  Receive Date: 20220615
  Receipt Date: 20220615
  Transmission Date: 20220721
  Serious: Yes (Hospitalization, Other)
  Sender: FDA-Public Use
  Company Number: None

PATIENT
  Age: 67 Year
  Sex: Male
  Weight: 68 kg

DRUGS (14)
  1. CYCLOPHOSPHAMIDE [Suspect]
     Active Substance: CYCLOPHOSPHAMIDE
     Indication: Non-Hodgkin^s lymphoma
     Dosage: 1.35 G, QD, INJECTION, CYCLOPHOSPHAMIDE (1.35G) + NS 250ML D2
     Route: 041
     Dates: start: 20220107, end: 20220107
  2. CYCLOPHOSPHAMIDE [Suspect]
     Active Substance: CYCLOPHOSPHAMIDE
     Dosage: DOSE RE-INTRODUCED
     Route: 041
  3. EPIRUBICIN [Suspect]
     Active Substance: EPIRUBICIN
     Indication: Non-Hodgkin^s lymphoma
     Dosage: 120 MG, QD, EPIRUBICIN (120MG) + NS (100ML) D2
     Route: 041
     Dates: start: 20220107, end: 20220107
  4. EPIRUBICIN [Suspect]
     Active Substance: EPIRUBICIN
     Dosage: DOSE RE-INTRODUCED
     Route: 041
  5. VINDESINE SULFATE [Suspect]
     Active Substance: VINDESINE SULFATE
     Indication: Non-Hodgkin^s lymphoma
     Dosage: 4 MG, QD , VINDESINE 4MG + NS 40ML D2
     Route: 042
     Dates: start: 20220107, end: 20220107
  6. VINDESINE SULFATE [Suspect]
     Active Substance: VINDESINE SULFATE
     Dosage: DOSE RE-INTRODUCED
     Route: 042
  7. SODIUM CHLORIDE [Suspect]
     Active Substance: SODIUM CHLORIDE
     Indication: Medication dilution
     Dosage: 90 ML, RITUXIMAB (600MG) + NS (90ML) 6 TIMES/DAY D1
     Route: 041
     Dates: start: 20220106, end: 20220106
  8. SODIUM CHLORIDE [Suspect]
     Active Substance: SODIUM CHLORIDE
     Dosage: 250 ML, QD, CYCLOPHOSPHAMIDE (1.35G) + NS (250ML) D2
     Route: 041
     Dates: start: 20220107, end: 20220107
  9. SODIUM CHLORIDE [Suspect]
     Active Substance: SODIUM CHLORIDE
     Dosage: 40 ML, QD, VINDESINE (4MG) + NS (40ML) D2
     Route: 042
     Dates: start: 20220107, end: 20220107
  10. SODIUM CHLORIDE [Suspect]
     Active Substance: SODIUM CHLORIDE
     Dosage: 100 ML, QD, EPIRUBICIN (120MG) + NS (100ML) D2
     Route: 041
     Dates: start: 20220107, end: 20220107
  11. SODIUM CHLORIDE [Suspect]
     Active Substance: SODIUM CHLORIDE
     Dosage: DOSE RE-INTRODUCED, RITUXIMAB + NS
     Route: 041
  12. SODIUM CHLORIDE [Suspect]
     Active Substance: SODIUM CHLORIDE
     Dosage: DOSE RE-INTRODUCED, QD, CYCLOPHOSPHAMIDE + NS
     Route: 041
  13. SODIUM CHLORIDE [Suspect]
     Active Substance: SODIUM CHLORIDE
     Dosage: DOSE RE-INTRODUCED, QD, VINDESINE + NS
     Route: 042
  14. SODIUM CHLORIDE [Suspect]
     Active Substance: SODIUM CHLORIDE
     Dosage: DOSE RE-INTRODUCED, QD, EPIRUBICIN + NS
     Route: 041

REACTIONS (3)
  - Asthma [Unknown]
  - Pancytopenia [Not Recovered/Not Resolved]
  - Pyrexia [Unknown]

NARRATIVE: CASE EVENT DATE: 20220117
